FAERS Safety Report 10532967 (Version 2)
Quarter: 2014Q4

REPORT INFORMATION
  Report Type: Spontaneous
  Country: US (occurrence: US)
  Receive Date: 20141022
  Receipt Date: 20141022
  Transmission Date: 20150529
  Serious: Yes (Other)
  Sender: FDA-Public Use
  Company Number: US-UNITED THERAPEUTICS-UNT-2014-005234

PATIENT
  Age: 76 Year
  Sex: Male
  Weight: 92.52 kg

DRUGS (4)
  1. TYVASO [Suspect]
     Active Substance: TREPROSTINIL
     Dosage: 18 TO 54 ?G, QID
     Dates: start: 20140723
  2. TYVASO [Suspect]
     Active Substance: TREPROSTINIL
     Indication: PULMONARY ARTERIAL HYPERTENSION
     Dosage: 18 TO 54 ?G, QID
     Dates: start: 20140723
  3. TYVASO [Suspect]
     Active Substance: TREPROSTINIL
     Dosage: 1 KIT, QID
     Dates: start: 20140723
  4. REVATIO [Concomitant]
     Active Substance: SILDENAFIL CITRATE
     Indication: PRODUCT USED FOR UNKNOWN INDICATION

REACTIONS (10)
  - Nasopharyngitis [Unknown]
  - Therapy cessation [Unknown]
  - Scar [Unknown]
  - Haemoptysis [Unknown]
  - Drug dose omission [Unknown]
  - Dyspnoea exertional [Unknown]
  - Dyspnoea [Unknown]
  - Infection [Unknown]
  - Prostatic operation [Unknown]
  - Cough [Unknown]

NARRATIVE: CASE EVENT DATE: 2014
